FAERS Safety Report 20594501 (Version 1)
Quarter: 2022Q1

REPORT INFORMATION
  Report Type: Spontaneous
  Country: US (occurrence: None)
  Receive Date: 20220315
  Receipt Date: 20220315
  Transmission Date: 20220423
  Serious: No
  Sender: FDA-Public Use
  Company Number: 2022A100241

PATIENT
  Age: 5 Year
  Sex: Female
  Weight: 27.2 kg

DRUGS (1)
  1. PULMICORT FLEXHALER [Suspect]
     Active Substance: BUDESONIDE
     Route: 055

REACTIONS (4)
  - Dyspnoea [Unknown]
  - Product use issue [Unknown]
  - Product use issue [Unknown]
  - Device delivery system issue [Unknown]
